FAERS Safety Report 8800203 (Version 2)
Quarter: 2015Q3

REPORT INFORMATION
  Report Type: Report from Study
  Country: JP (occurrence: JP)
  Receive Date: 20120921
  Receipt Date: 20150702
  Transmission Date: 20151125
  Serious: Yes (Death)
  Sender: FDA-Public Use
  Company Number: JP-009507513-1209JPN007502

PATIENT
  Age: 86 Year
  Sex: Male
  Weight: 58 kg

DRUGS (11)
  1. DIAZOXIDE [Suspect]
     Active Substance: DIAZOXIDE
     Dosage: 25 MG, BID
     Route: 048
     Dates: start: 20110518, end: 20110629
  2. DIAZOXIDE [Suspect]
     Active Substance: DIAZOXIDE
     Dosage: 50 MG, BID
     Route: 048
     Dates: start: 20110630, end: 20110704
  3. DIAZOXIDE [Suspect]
     Active Substance: DIAZOXIDE
     Dosage: 50 MG, TID
     Route: 048
     Dates: start: 20110705, end: 20110921
  4. CELTECT [Concomitant]
     Active Substance: OXATOMIDE
     Indication: ASTHMA
     Dosage: 60 MG, QD. DIVIDED DOSE FREQUENCY UNKNOWN
     Route: 048
  5. THEOLONG [Concomitant]
     Active Substance: THEOPHYLLINE ANHYDROUS
     Indication: EMPHYSEMA
     Dosage: 200 MG, QD. DIVIDED DOSE FREQUENCY UNKNOWN.
     Route: 048
  6. ALOSITOL [Concomitant]
     Active Substance: ALLOPURINOL
     Indication: HYPERURICAEMIA
     Dosage: |100 MG, QD.DIVIDED DOSE FREQUENCY UNKNOWN
     Route: 048
  7. JUVELA N [Concomitant]
     Active Substance: TOCOPHERYL NICOTINATE, D-.ALPHA.
     Indication: HYPERURICAEMIA
     Dosage: 400 MG, QD.DIVIDED DOSE FREQUENCY UNKNOWN
     Route: 048
  8. DIAZOXIDE [Suspect]
     Active Substance: DIAZOXIDE
     Indication: HYPOGLYCAEMIA
     Dosage: 25 MG, TID
     Route: 048
     Dates: start: 20110330, end: 20110517
  9. BAYASPIRIN [Concomitant]
     Active Substance: ASPIRIN
     Indication: CEREBRAL INFARCTION
     Dosage: 100 MG, QD.DIVIDED DOSE FREQUENCY UNKNOWN
     Route: 048
  10. GASTER [Concomitant]
     Active Substance: FAMOTIDINE
     Indication: GASTRITIS
     Dosage: 40 MG, QD. DIVIDED DOSE FREQUENCY UNKNOWN
     Route: 048
  11. MERISLON [Concomitant]
     Active Substance: BETAHISTINE MESILATE
     Indication: DIZZINESS
     Dosage: 12 MG, QD.DIVIDED DOSE FREQUENCY UNKNOWN
     Route: 048

REACTIONS (1)
  - Post procedural infection [Fatal]

NARRATIVE: CASE EVENT DATE: 20110419
